FAERS Safety Report 9546900 (Version 1)
Quarter: 2013Q2

REPORT INFORMATION
  Report Type: Spontaneous
  Country: US (occurrence: None)
  Receive Date: 20130606
  Receipt Date: 20130606
  Transmission Date: 20140414
  Serious: Yes (Other)
  Sender: FDA-Public Use
  Company Number: 163-POMAL-13041421

PATIENT
  Age: 78 Year
  Sex: Male

DRUGS (9)
  1. POMALYST [Suspect]
     Indication: PLASMA CELL MYELOMA
     Dosage: 4 MG, 21 IN 21 D
     Route: 048
     Dates: start: 20130320
  2. ACYCLOVIR [Concomitant]
  3. CHERATUSSIN AC [Concomitant]
  4. AMOXICILLIN W/ CLAVULANATE POTASSIUM [Concomitant]
  5. COMBIVENT [Concomitant]
  6. DEXAMETHASONE [Concomitant]
  7. FLUCONAZOLE [Concomitant]
  8. LEVOFLOXACIN IN D5W [Concomitant]
  9. METRONIDAZOLE [Concomitant]

REACTIONS (2)
  - Pruritus [None]
  - Oedema peripheral [None]
